FAERS Safety Report 24097749 (Version 2)
Quarter: 2024Q3

REPORT INFORMATION
  Report Type: Spontaneous
  Country: US (occurrence: US)
  Receive Date: 20240716
  Receipt Date: 20240802
  Transmission Date: 20241017
  Serious: Yes (Life-Threatening, Hospitalization)
  Sender: TEVA
  Company Number: US-TEVA-VS-3217757

PATIENT
  Age: 83 Year
  Sex: Male

DRUGS (1)
  1. MORPHINE [Suspect]
     Active Substance: MORPHINE
     Indication: Pain
     Route: 065

REACTIONS (4)
  - Sphincter of Oddi dysfunction [Recovering/Resolving]
  - Shock haemorrhagic [Recovering/Resolving]
  - Pleural disorder [Recovering/Resolving]
  - Respiratory failure [Recovering/Resolving]
